FAERS Safety Report 7424252-9 (Version None)
Quarter: 2011Q2

REPORT INFORMATION
  Report Type: 
  Country: None (occurrence: None)
  Receive Date: 20110413
  Receipt Date: 20110329
  Transmission Date: 20111010
  Serious: Yes (Other)
  Sender: FDA-Public Use
  Company Number: TPA2010A06408

PATIENT
  Age: 57 Year
  Sex: Male

DRUGS (6)
  1. BISOPROLOL FUMARATE [Concomitant]
  2. TRAMADOL HCL [Concomitant]
  3. RASBURICASE [Suspect]
  4. COLCHICINE [Concomitant]
  5. ADENURIC (FEBUXOSTAT) [Suspect]
     Indication: GOUT
     Dosage: 80 MG (80 MG,1 IN 1 D) ORAL
     Route: 048
     Dates: start: 20101109
  6. METFORMIN (METFORMIN) [Concomitant]

REACTIONS (1)
  - DYSKINESIA [None]
